FAERS Safety Report 11003589 (Version 1)
Quarter: 2015Q2

REPORT INFORMATION
  Report Type: Spontaneous
  Country: US (occurrence: None)
  Receive Date: 20150403
  Receipt Date: 20150403
  Transmission Date: 20150821
  Serious: Yes (Other)
  Sender: FDA-Public Use
  Company Number: 2014-05018

PATIENT
  Sex: Female

DRUGS (4)
  1. METOCLOPRAMIDE. [Suspect]
     Active Substance: METOCLOPRAMIDE
     Indication: ABDOMINAL DISTENSION
     Dosage: ^AS PRESCRIBED AND IN A FORESEEABLE MANNER^, ORAL
     Route: 048
  2. REGLAN [Suspect]
     Active Substance: METOCLOPRAMIDE HYDROCHLORIDE
     Indication: GASTROOESOPHAGEAL REFLUX DISEASE
     Dosage: ^AS PRESCRIBED AND IN A FORESEEABLE MANNER^, ORAL
     Route: 048
  3. METOCLOPRAMIDE. [Suspect]
     Active Substance: METOCLOPRAMIDE
     Indication: GASTROOESOPHAGEAL REFLUX DISEASE
     Dosage: ^AS PRESCRIBED AND IN A FORESEEABLE MANNER^, ORAL
     Route: 048
  4. REGLAN [Suspect]
     Active Substance: METOCLOPRAMIDE HYDROCHLORIDE
     Indication: ABDOMINAL DISTENSION
     Dosage: ^AS PRESCRIBED AND IN A FORESEEABLE MANNER^, ORAL
     Route: 048

REACTIONS (4)
  - Extrapyramidal disorder [None]
  - Incorrect drug administration duration [None]
  - Nervous system disorder [None]
  - Tardive dyskinesia [None]
